FAERS Safety Report 4566374-6 (Version None)
Quarter: 2005Q1

REPORT INFORMATION
  Report Type: 
  Country: None (occurrence: None)
  Receive Date: 20050201
  Receipt Date: 20041026
  Transmission Date: 20050727
  Serious: Yes (Disabling)
  Sender: FDA-Public Use
  Company Number: PHEH2004US11550

PATIENT
  Age: 46 Year
  Sex: Male

DRUGS (7)
  1. ZOMETA [Suspect]
     Indication: METASTASES TO BONE
     Dosage: 4 MG MONTHLY
     Route: 042
     Dates: start: 20041018
  2. CARBOPLATIN [Concomitant]
     Indication: PROSTATE CANCER
     Dosage: 520 MG Q3W
     Route: 042
     Dates: start: 20040726
  3. VP-16 [Concomitant]
     Indication: PROSTATE CANCER
     Dosage: UNK, UNK
     Dates: start: 20040728
  4. DECADRON [Concomitant]
     Dosage: 10MG UNK
     Route: 042
     Dates: start: 20040726
  5. ANZEMET [Concomitant]
     Dosage: 150MG Q3W
     Dates: start: 20040726
  6. PROCRIT [Concomitant]
     Indication: ANAEMIA
     Dosage: 40,000 IU
     Dates: start: 20040927
  7. OXYCONTIN [Concomitant]
     Indication: PAIN
     Dosage: 10 MG, BID
     Dates: start: 20040901

REACTIONS (8)
  - BODY TEMPERATURE INCREASED [None]
  - BURSITIS [None]
  - INFLUENZA LIKE ILLNESS [None]
  - JOINT EFFUSION [None]
  - JOINT SWELLING [None]
  - MOBILITY DECREASED [None]
  - OSTEOARTHRITIS [None]
  - PAIN [None]
